FAERS Safety Report 8358638-5 (Version None)
Quarter: 2012Q2

REPORT INFORMATION
  Report Type: 
  Country: None (occurrence: None)
  Receive Date: 20120514
  Receipt Date: 20120510
  Transmission Date: 20120825
  Serious: Yes (Hospitalization)
  Sender: FDA-Public Use
  Company Number: BE-ROCHE-1029077

PATIENT
  Age: 29 Year
  Sex: Male

DRUGS (4)
  1. VEMURAFENIB [Suspect]
     Indication: MALIGNANT MELANOMA
     Dosage: LAST DOSE PRIOR TO SAE - 06/JAN/2012
     Route: 048
     Dates: start: 20110803
  2. ZOLPIDEM [Concomitant]
     Route: 065
     Dates: start: 20111025
  3. KEPPRA [Concomitant]
     Route: 065
     Dates: start: 20110825
  4. DEPAKENE [Concomitant]
     Route: 065
     Dates: start: 20110823

REACTIONS (1)
  - PILONIDAL CYST [None]
